FAERS Safety Report 7743082-1 (Version None)
Quarter: 2011Q3

REPORT INFORMATION
  Report Type: 
  Country: None (occurrence: None)
  Receive Date: 20110912
  Receipt Date: 20110829
  Transmission Date: 20111222
  Serious: Yes (Life-Threatening, Hospitalization, Other)
  Sender: FDA-Public Use
  Company Number: US-ELI_LILLY_AND_COMPANY-US201107002003

PATIENT
  Sex: Female

DRUGS (19)
  1. OXYCODONE HCL [Concomitant]
  2. PROZAC [Concomitant]
  3. CELEBREX [Concomitant]
  4. NEURONTIN [Concomitant]
  5. TAZIDIME [Concomitant]
  6. FLUOXETINE [Concomitant]
  7. BYSTOLIC [Concomitant]
  8. MORPHINE SULFATE [Concomitant]
  9. FORTEO [Suspect]
     Indication: OSTEOPOROSIS
     Dosage: 20 UG, QD
     Route: 065
     Dates: start: 20110625, end: 20110720
  10. LEVOTHYROXINE SODIUM [Concomitant]
  11. LIPITOR [Concomitant]
  12. FERROUS SULFATE TAB [Concomitant]
  13. CALCIUM CARBONATE [Concomitant]
  14. FENTANYL [Concomitant]
  15. GABAPENTIN [Concomitant]
  16. DOCUSATE SODIUM [Concomitant]
  17. MULTI-VITAMIN [Concomitant]
  18. DILAUDID [Concomitant]
  19. LUNESTA [Concomitant]

REACTIONS (4)
  - RESPIRATORY ARREST [None]
  - INJECTION SITE ERYTHEMA [None]
  - SPINAL DEFORMITY [None]
  - CYSTITIS [None]
